FAERS Safety Report 4635998-X (Version None)
Quarter: 2005Q2

REPORT INFORMATION
  Report Type: 
  Country: None (occurrence: None)
  Receive Date: 20050415
  Receipt Date: 20050401
  Transmission Date: 20051028
  Serious: Yes (Other)
  Sender: FDA-Public Use
  Company Number: AU-BRISTOL-MYERS SQUIBB COMPANY-12919205

PATIENT
  Age: 67 Year
  Sex: Male
  Weight: 91 kg

DRUGS (2)
  1. CETUXIMAB [Suspect]
     Indication: COLORECTAL CANCER METASTATIC
     Dosage: PT HAD NOT COMPLETED INFUSION DUE TO EVENT.
     Route: 042
     Dates: start: 20050324, end: 20050324
  2. PHENERGAN [Suspect]
     Indication: PREMEDICATION
     Route: 042
     Dates: start: 20050324, end: 20050324

REACTIONS (2)
  - HALLUCINATION [None]
  - HALLUCINATION, VISUAL [None]
